FAERS Safety Report 24699663 (Version 2)
Quarter: 2025Q1

REPORT INFORMATION
  Report Type: Spontaneous
  Country: US (occurrence: US)
  Receive Date: 20241205
  Receipt Date: 20250107
  Transmission Date: 20250409
  Serious: No
  Sender: GLAUKOS
  Company Number: US-GLK-002395

PATIENT
  Age: 82 Year
  Sex: Male

DRUGS (3)
  1. IDOSE TR [Suspect]
     Active Substance: TRAVOPROST
     Indication: Open angle glaucoma
     Dates: start: 20240625, end: 20241107
  2. DURYSTA [Concomitant]
     Active Substance: BIMATOPROST
     Indication: Product used for unknown indication
     Dates: start: 202102, end: 202301
  3. DEVICE [Suspect]
     Active Substance: DEVICE
     Indication: Product used for unknown indication
     Dates: start: 20240625

REACTIONS (2)
  - Eye oedema [Unknown]
  - Medical device removal [Unknown]

NARRATIVE: CASE EVENT DATE: 20240725
